FAERS Safety Report 16716298 (Version 1)
Quarter: 2019Q4

REPORT INFORMATION
  Report Type: Spontaneous
  Country: IN (occurrence: IN)
  Receive Date: 20190818
  Receipt Date: 20190818
  Transmission Date: 20200122
  Serious: No
  Sender: FDA-Public Use
  Company Number: None

PATIENT
  Age: 28 Year
  Sex: Male
  Weight: 78 kg

DRUGS (2)
  1. LULICONAZOLE. [Suspect]
     Active Substance: LULICONAZOLE
     Indication: FUNGAL INFECTION
     Dosage: ?          QUANTITY:20 ML;?
     Route: 061
     Dates: start: 20190817, end: 20190818
  2. LULICONAZOLE. [Suspect]
     Active Substance: LULICONAZOLE
     Indication: PENILE INFECTION
     Dosage: ?          QUANTITY:20 ML;?
     Route: 061
     Dates: start: 20190817, end: 20190818

REACTIONS (4)
  - Dry skin [None]
  - Skin exfoliation [None]
  - Application site pain [None]
  - Penile burning sensation [None]

NARRATIVE: CASE EVENT DATE: 20190818
